FAERS Safety Report 23449978 (Version 1)
Quarter: 2024Q1

REPORT INFORMATION
  Report Type: Other
  Country: US (occurrence: US)
  Receive Date: 20240129
  Receipt Date: 20240129
  Transmission Date: 20240409
  Serious: No
  Sender: FDA-Public Use
  Company Number: US-APOTEX-2023AP009397

PATIENT

DRUGS (1)
  1. TIZANIDINE [Suspect]
     Active Substance: TIZANIDINE
     Indication: Temporomandibular joint syndrome
     Dosage: 2 MILLIGRAM, QID
     Route: 065
     Dates: start: 202301, end: 202301

REACTIONS (5)
  - Palpitations [Unknown]
  - Feeling jittery [Unknown]
  - Irritability [Unknown]
  - Product substitution issue [Unknown]
  - Drug ineffective [Unknown]

NARRATIVE: CASE EVENT DATE: 20230101
